FAERS Safety Report 6180554-8 (Version None)
Quarter: 2009Q2

REPORT INFORMATION
  Report Type: 
  Country: None (occurrence: None)
  Receive Date: 20090504
  Receipt Date: 20090429
  Transmission Date: 20091009
  Serious: Yes (Death)
  Sender: FDA-Public Use
  Company Number: 2009SP009178

PATIENT
  Sex: Male

DRUGS (1)
  1. PEG-INTRON (PEGINTERFEREON ALFA-2B) [Suspect]
     Indication: DRUG USE FOR UNKNOWN INDICATION
     Dates: start: 20090201

REACTIONS (1)
  - DEATH [None]
